FAERS Safety Report 4984754-1 (Version None)
Quarter: 2006Q2

REPORT INFORMATION
  Report Type: 
  Country: None (occurrence: None)
  Receive Date: 20060427
  Receipt Date: 20050919
  Transmission Date: 20061013
  Serious: Yes (Hospitalization, Disabling)
  Sender: FDA-Public Use
  Company Number: US-MERCK-0509USA02965

PATIENT
  Sex: Male
  Weight: 127 kg

DRUGS (1)
  1. VIOXX [Suspect]
     Indication: ARTHRITIS
     Route: 048
     Dates: start: 20010306, end: 20040927

REACTIONS (7)
  - ARTHROPATHY [None]
  - CEREBROVASCULAR ACCIDENT [None]
  - FEAR [None]
  - GALLBLADDER DISORDER [None]
  - GALLBLADDER OPERATION [None]
  - KNEE OPERATION [None]
  - MYOCARDIAL INFARCTION [None]
